FAERS Safety Report 11206571 (Version 1)
Quarter: 2015Q2

REPORT INFORMATION
  Report Type: Spontaneous
  Country: US (occurrence: None)
  Receive Date: 20150618
  Receipt Date: 20150618
  Transmission Date: 20150821
  Serious: Yes (Other)
  Sender: FDA-Public Use
  Company Number: None

PATIENT
  Age: 27 Year
  Sex: Female
  Weight: 79.38 kg

DRUGS (2)
  1. DULOXETINE 20 MG TEVA [Suspect]
     Active Substance: DULOXETINE
     Indication: BACK PAIN
     Route: 048
     Dates: start: 20150614, end: 20150616
  2. MAXALT MAGNESIUMOXIDE NAPROXIN [Concomitant]

REACTIONS (3)
  - Pyrexia [None]
  - Depression [None]
  - Exposure during breast feeding [None]

NARRATIVE: CASE EVENT DATE: 20150615
